FAERS Safety Report 4811472-2 (Version None)
Quarter: 2005Q4

REPORT INFORMATION
  Report Type: 
  Country: None (occurrence: None)
  Receive Date: 20051027
  Receipt Date: 20020402
  Transmission Date: 20060501
  Serious: Yes (Disabling)
  Sender: FDA-Public Use
  Company Number: PL-ROCHE-310487

PATIENT
  Age: 38 Year
  Sex: Female
  Weight: 69 kg

DRUGS (3)
  1. PEG-INTERFERON ALFA 2A (RO 25-8310) [Suspect]
     Route: 058
     Dates: start: 20010608, end: 20020322
  2. RIBAVIRIN [Suspect]
     Route: 048
     Dates: start: 20010608, end: 20020329
  3. EUTHYROX [Concomitant]
     Dates: start: 20020123

REACTIONS (1)
  - THYROID NEOPLASM [None]
